FAERS Safety Report 20933278 (Version 2)
Quarter: 2023Q4

REPORT INFORMATION
  Report Type: Spontaneous
  Country: US (occurrence: US)
  Receive Date: 20220608
  Receipt Date: 20231012
  Transmission Date: 20240110
  Serious: No
  Sender: FDA-Public Use
  Company Number: US-INSUD PHARMA-2206US02130

PATIENT

DRUGS (2)
  1. SLYND [Suspect]
     Active Substance: DROSPIRENONE
     Indication: Oral contraception
     Dosage: DAILY
     Route: 048
     Dates: start: 20220520
  2. SLYND [Suspect]
     Active Substance: DROSPIRENONE
     Dosage: DAILY
     Route: 048
     Dates: start: 2021, end: 202205

REACTIONS (2)
  - Upper-airway cough syndrome [Not Recovered/Not Resolved]
  - Eye discharge [Not Recovered/Not Resolved]

NARRATIVE: CASE EVENT DATE: 20210101
